FAERS Safety Report 8584874-9 (Version None)
Quarter: 2012Q3

REPORT INFORMATION
  Report Type: 
  Country: None (occurrence: None)
  Receive Date: 20120810
  Receipt Date: 20120727
  Transmission Date: 20120928
  Serious: Yes (Other)
  Sender: FDA-Public Use
  Company Number: US-ELI_LILLY_AND_COMPANY-US201204008759

PATIENT
  Age: 62 Year
  Sex: Female

DRUGS (5)
  1. VICODIN [Concomitant]
  2. PROZAC [Suspect]
     Dosage: 40 MG, QD
     Dates: start: 20040101
  3. OXYCONTIN [Concomitant]
  4. PROZAC [Suspect]
     Indication: MAJOR DEPRESSION
     Dosage: 20 MG, QD
     Dates: start: 19920101, end: 20040101
  5. LIVALO [Concomitant]

REACTIONS (6)
  - SPINAL COLUMN STENOSIS [None]
  - OFF LABEL USE [None]
  - PAIN [None]
  - HEADACHE [None]
  - HODGKIN'S DISEASE STAGE III [None]
  - FEELING ABNORMAL [None]
